FAERS Safety Report 25051447 (Version 1)
Quarter: 2025Q1

REPORT INFORMATION
  Report Type: Spontaneous
  Country: US (occurrence: None)
  Receive Date: 20250307
  Receipt Date: 20250307
  Transmission Date: 20250409
  Serious: Yes (Disabling)
  Sender: FDA-CTU
  Company Number: None

PATIENT
  Age: 82 Year
  Sex: Male
  Weight: 76.5 kg

DRUGS (6)
  1. FINASTERIDE [Suspect]
     Active Substance: FINASTERIDE
     Indication: Benign prostatic hyperplasia
     Dosage: 1 TABLET DAILY ORAL
     Route: 048
     Dates: start: 20200115
  2. TAMSULOSIN [Concomitant]
     Active Substance: TAMSULOSIN
  3. FISH OIL [Concomitant]
     Active Substance: FISH OIL
  4. vitamins D [Concomitant]
  5. B12 [Concomitant]
  6. CRANBERRY [Suspect]
     Active Substance: CRANBERRY

REACTIONS (15)
  - Loss of libido [None]
  - Breast enlargement [None]
  - Ejaculation failure [None]
  - Mental disorder [None]
  - Product communication issue [None]
  - Depression [None]
  - Anger [None]
  - Suicidal ideation [None]
  - Hair growth abnormal [None]
  - Skin atrophy [None]
  - Skin exfoliation [None]
  - Scab [None]
  - Pruritus [None]
  - Onychoclasis [None]
  - Therapy change [None]
